FAERS Safety Report 6338439-X (Version None)
Quarter: 2009Q3

REPORT INFORMATION
  Report Type: 
  Country: None (occurrence: None)
  Receive Date: 20090901
  Receipt Date: 20090817
  Transmission Date: 20100115
  Serious: Yes (Hospitalization)
  Sender: FDA-Public Use
  Company Number: 2008AL007882

PATIENT
  Age: 62 Year
  Sex: Female

DRUGS (54)
  1. DIGOXIN [Suspect]
     Indication: CARDIAC DISORDER
     Dosage: 0.125MG, PO
     Route: 048
  2. SPIRIVA [Concomitant]
  3. MAXAIR [Concomitant]
  4. ACIPHEX [Concomitant]
  5. RANITIDINE [Concomitant]
  6. ALPRACOLAM [Concomitant]
  7. METOPROLOL TARTRATE [Concomitant]
  8. ENALAPRIL MALEATE [Concomitant]
  9. TOPROL-XL [Concomitant]
  10. VASOTEC [Concomitant]
  11. COUMADIN [Concomitant]
  12. LIPITOR [Concomitant]
  13. COLESTIPOL HYDROCHLORIDE [Concomitant]
  14. RHYTHMOL [Concomitant]
  15. LASIX [Concomitant]
  16. XANAX [Concomitant]
  17. COLESTID [Concomitant]
  18. PREMARIN [Concomitant]
  19. ZANTAC [Concomitant]
  20. NABUMETONE [Concomitant]
  21. FLONASE [Concomitant]
  22. KEFLEX [Concomitant]
  23. ARIMIDEX [Concomitant]
  24. MECLIZINE [Concomitant]
  25. NITROGLYCERIN [Concomitant]
  26. CEPHALEXIN [Concomitant]
  27. . [Concomitant]
  28. HYDROCODONE BITARTRATE + ACETAMINOPHEN [Concomitant]
  29. ERYTHROMYCIN [Concomitant]
  30. KLOR-CON [Concomitant]
  31. AZITHROMYCIN [Concomitant]
  32. FLUTICASONE [Concomitant]
  33. METRONIDAZOLE [Concomitant]
  34. OXYCODONE HCL AND ACETAMINOPHEN [Concomitant]
  35. PROPO-N-APAP [Concomitant]
  36. TRIMETHOBENZAMIDE HCL [Concomitant]
  37. METHYLPRED [Concomitant]
  38. MAXAIR [Concomitant]
  39. . [Concomitant]
  40. ZOVIRAX [Concomitant]
  41. NABUMETONE [Concomitant]
  42. ZITHROMAX [Concomitant]
  43. TRANSDERM-STOP PATCH [Concomitant]
  44. AMIODARONE HCL [Concomitant]
  45. PROMETH VC W/ CODEINE [Concomitant]
  46. BENZONATATE [Concomitant]
  47. TUSSIONEX PENNKINE [Concomitant]
  48. BIAXIN [Concomitant]
  49. ALLEGRA [Concomitant]
  50. QUINAGLUTE [Concomitant]
  51. PRILOSEC [Concomitant]
  52. QUININE SULFATE [Concomitant]
  53. HYOSCYAMINE [Concomitant]
  54. AMOXICILLIN [Concomitant]

REACTIONS (27)
  - ANXIETY [None]
  - ARRHYTHMIA [None]
  - ASTHENIA [None]
  - ATRIAL TACHYCARDIA [None]
  - CARDIAC ARREST [None]
  - CARDIAC DISORDER [None]
  - CARDIAC PACEMAKER INSERTION [None]
  - DEHYDRATION [None]
  - DIZZINESS [None]
  - FATIGUE [None]
  - HAEMATOMA [None]
  - HEART RATE IRREGULAR [None]
  - HYPOTENSION [None]
  - INJURY [None]
  - NAUSEA [None]
  - NERVOUS SYSTEM DISORDER [None]
  - PACEMAKER COMPLICATION [None]
  - PALPITATIONS [None]
  - PRESYNCOPE [None]
  - RHONCHI [None]
  - STRESS [None]
  - SWELLING [None]
  - SYNCOPE [None]
  - THERAPEUTIC AGENT TOXICITY [None]
  - VERTIGO [None]
  - VOMITING [None]
  - WEIGHT DECREASED [None]
